FAERS Safety Report 20367936 (Version 7)
Quarter: 2022Q2

REPORT INFORMATION
  Report Type: Report from Study
  Country: US (occurrence: US)
  Receive Date: 20220124
  Receipt Date: 20220418
  Transmission Date: 20220721
  Serious: Yes (Hospitalization, Other)
  Sender: FDA-Public Use
  Company Number: US-BIOGEN-2022BI01087375

PATIENT
  Sex: Female

DRUGS (2)
  1. TECFIDERA [Suspect]
     Active Substance: DIMETHYL FUMARATE
     Indication: Multiple sclerosis
     Dosage: STARTING DOSE
     Route: 065
     Dates: start: 20130910
  2. TECFIDERA [Suspect]
     Active Substance: DIMETHYL FUMARATE
     Dosage: MAINTENANCE DOSE
     Route: 048
     Dates: end: 20220222

REACTIONS (4)
  - Lung neoplasm malignant [Recovered/Resolved]
  - Accident at work [Unknown]
  - Adrenal neoplasm [Not Recovered/Not Resolved]
  - Craniopharyngioma [Recovered/Resolved]

NARRATIVE: CASE EVENT DATE: 20190101
